FAERS Safety Report 9914252 (Version 1)
Quarter: 2014Q1

REPORT INFORMATION
  Report Type: Spontaneous
  Country: US (occurrence: US)
  Receive Date: 20140220
  Receipt Date: 20140220
  Transmission Date: 20141002
  Serious: Yes (Other)
  Sender: FDA-Public Use
  Company Number: US-ACTAVIS-2014-02558

PATIENT
  Sex: Female

DRUGS (1)
  1. GENERESS FE (WATSON LABORATORIES) [Suspect]
     Indication: PRODUCT USED FOR UNKNOWN INDICATION
     Dosage: 1 DF, DAILY
     Route: 048
     Dates: start: 201311

REACTIONS (3)
  - Lower respiratory tract infection [Unknown]
  - Headache [Not Recovered/Not Resolved]
  - Tonsillitis [Unknown]
